FAERS Safety Report 18522219 (Version 1)
Quarter: 2020Q4

REPORT INFORMATION
  Report Type: Report from Study
  Country: US (occurrence: US)
  Receive Date: 20201119
  Receipt Date: 20201119
  Transmission Date: 20210114
  Serious: Yes (Other)
  Sender: FDA-Public Use
  Company Number: US-MYLANLABS-2020M1095450

PATIENT
  Age: 47 Year
  Sex: Male

DRUGS (2)
  1. EVEROLIMUS. [Suspect]
     Active Substance: EVEROLIMUS
     Indication: MALIGNANT NEOPLASM OF THYMUS
     Dosage: 7.5 MILLIGRAM, QD
     Route: 048
  2. EVEROLIMUS. [Suspect]
     Active Substance: EVEROLIMUS
     Dosage: REDUCED TO 5MG AFTER 19 DAYS
     Route: 048

REACTIONS (1)
  - Mucosal inflammation [Recovering/Resolving]
